FAERS Safety Report 20152723 (Version 1)
Quarter: 2021Q4

REPORT INFORMATION
  Report Type: Spontaneous
  Country: US (occurrence: None)
  Receive Date: 20211206
  Receipt Date: 20211206
  Transmission Date: 20220303
  Serious: Yes (Other)
  Sender: FDA-Public Use
  Company Number: None

PATIENT
  Age: 53 Year
  Sex: Female
  Weight: 112.5 kg

DRUGS (2)
  1. NEBIVOLOL [Suspect]
     Active Substance: NEBIVOLOL
     Indication: Arrhythmia
     Route: 048
     Dates: start: 20211101, end: 20211201
  2. NEBIVOLOL [Suspect]
     Active Substance: NEBIVOLOL
     Indication: Palpitations

REACTIONS (6)
  - Product substitution issue [None]
  - Arrhythmia [None]
  - Palpitations [None]
  - Symptom recurrence [None]
  - Drug ineffective [None]
  - Product complaint [None]

NARRATIVE: CASE EVENT DATE: 20211101
